FAERS Safety Report 8586142 (Version 2)
Quarter: 2013Q2

REPORT INFORMATION
  Report Type: Spontaneous
  Country: US (occurrence: US)
  Receive Date: 20120530
  Receipt Date: 20130530
  Transmission Date: 20140414
  Serious: No
  Sender: FDA-Public Use
  Company Number: US-GLAXOSMITHKLINE-A0957132A

PATIENT
  Age: 51 Year
  Sex: Female

DRUGS (2)
  1. VENTOLIN [Suspect]
     Indication: COUGH
     Dosage: 2PUFF FOUR TIMES PER DAY
     Route: 055
     Dates: start: 20111130, end: 20111201
  2. ADVAIR [Concomitant]

REACTIONS (2)
  - Cough [Unknown]
  - Dyspnoea [Unknown]
